FAERS Safety Report 11704642 (Version 1)
Quarter: 2015Q4

REPORT INFORMATION
  Report Type: Spontaneous
  Country: US (occurrence: US)
  Receive Date: 20151106
  Receipt Date: 20151106
  Transmission Date: 20160304
  Serious: Yes (Other)
  Sender: FDA-Public Use
  Company Number: US-BAYER-2015-454457

PATIENT
  Age: 69 Year
  Sex: Male
  Weight: 70.3 kg

DRUGS (6)
  1. METFORMIN [Concomitant]
     Active Substance: METFORMIN HYDROCHLORIDE
     Dosage: UNK UNK, UNK
  2. OMEPRAZOLE. [Concomitant]
     Active Substance: OMEPRAZOLE
     Dosage: UNK UNK, UNK
  3. ALEVE [Suspect]
     Active Substance: NAPROXEN SODIUM
     Indication: ABDOMINAL PAIN UPPER
     Dosage: 1 DF, Q8HR
     Route: 048
     Dates: start: 20151024, end: 20151026
  4. METOPROLOL [Concomitant]
     Active Substance: METOPROLOL
     Dosage: UNK UNK, UNK
  5. FENSPIRIDE [Concomitant]
     Active Substance: FENSPIRIDE
     Dosage: UNK UNK, UNK
  6. LISINOPRIL. [Concomitant]
     Active Substance: LISINOPRIL
     Dosage: UNK UNK, UNK

REACTIONS (8)
  - Balance disorder [Recovered/Resolved]
  - Abnormal behaviour [Recovered/Resolved]
  - Blood glucose decreased [Recovered/Resolved]
  - Therapeutic response unexpected [Not Recovered/Not Resolved]
  - Blood glucose decreased [Recovered/Resolved]
  - Mobility decreased [Recovered/Resolved]
  - Fall [Recovered/Resolved]
  - Poor quality sleep [Recovered/Resolved]

NARRATIVE: CASE EVENT DATE: 20151026
